FAERS Safety Report 19733421 (Version 2)
Quarter: 2021Q3

REPORT INFORMATION
  Report Type: Report from Study
  Country: None (occurrence: BE)
  Receive Date: 20210823
  Receipt Date: 20210825
  Transmission Date: 20211014
  Serious: Yes (Hospitalization)
  Sender: FDA-Public Use
  Company Number: BE-ABBVIE-21K-013-4047359-00

PATIENT
  Sex: Male
  Weight: 98 kg

DRUGS (5)
  1. DUODOPA [Suspect]
     Active Substance: CARBIDOPA\LEVODOPA
     Dosage: MD 6.0 ML; CD 5.2ML/H; ED 3.0 ML; CND 4.2ML/H DURING 16HRS
     Route: 050
     Dates: start: 20200811, end: 20210112
  2. DUODOPA [Suspect]
     Active Substance: CARBIDOPA\LEVODOPA
     Dosage: MD 6.0 ML; CD 5.4ML/H; ED 3.0 ML; CND 4.2ML/H DURING 24HRS
     Route: 050
     Dates: start: 20210112
  3. AZILECT [Concomitant]
     Active Substance: RASAGILINE MESYLATE
     Indication: PRODUCT USED FOR UNKNOWN INDICATION
  4. PROLOPA [Concomitant]
     Active Substance: BENSERAZIDE\LEVODOPA
     Indication: PRODUCT USED FOR UNKNOWN INDICATION
     Dosage: 0,75
  5. DUODOPA [Suspect]
     Active Substance: CARBIDOPA\LEVODOPA
     Indication: PARKINSON^S DISEASE
     Route: 050
     Dates: start: 20130402

REACTIONS (3)
  - Atrial fibrillation [Unknown]
  - Sense of oppression [Unknown]
  - Tachycardia [Unknown]

NARRATIVE: CASE EVENT DATE: 20210816
